FAERS Safety Report 7780181-2 (Version None)
Quarter: 2011Q3

REPORT INFORMATION
  Report Type: 
  Country: None (occurrence: None)
  Receive Date: 20110927
  Receipt Date: 20110927
  Transmission Date: 20111222
  Serious: Yes (Disabling, Other)
  Sender: FDA-Public Use
  Company Number: None

PATIENT
  Age: 42 Year
  Sex: Male
  Weight: 95.254 kg

DRUGS (1)
  1. LEVAQUIN [Suspect]
     Indication: SINUSITIS
     Dosage: 1
     Route: 048
     Dates: start: 20110913, end: 20110920

REACTIONS (4)
  - OROPHARYNGEAL PAIN [None]
  - PAIN [None]
  - PAIN IN EXTREMITY [None]
  - ASTHENIA [None]
